FAERS Safety Report 22398736 (Version 1)
Quarter: 2023Q2

REPORT INFORMATION
  Report Type: Spontaneous
  Country: CN (occurrence: CN)
  Receive Date: 20230602
  Receipt Date: 20230602
  Transmission Date: 20230721
  Serious: Yes (Hospitalization, Other)
  Sender: FDA-Public Use
  Company Number: None

PATIENT
  Age: 64 Year
  Sex: Female
  Weight: 50 kg

DRUGS (8)
  1. CYCLOPHOSPHAMIDE [Suspect]
     Active Substance: CYCLOPHOSPHAMIDE
     Indication: Non-Hodgkin^s lymphoma
     Dosage: 1.1 G, QD DILUTED WITH 0.9% SODIUM CHLORIDE 500ML
     Route: 041
     Dates: start: 20230429, end: 20230429
  2. DEXTROSE [Suspect]
     Active Substance: DEXTROSE\DEXTROSE MONOHYDRATE
     Indication: Medication dilution
     Dosage: 250 ML, QD (DOSAGE FORM: INJECTION, STRENGTH: 5 %) USED TO DILUTE 70 MG PIRARUBICIN HYDROCHLORIDE
     Route: 041
     Dates: start: 20230429, end: 20230429
  3. SODIUM CHLORIDE [Suspect]
     Active Substance: SODIUM CHLORIDE
     Indication: Medication dilution
     Dosage: 500 ML, QD (DOSAGE FORM: INJECTION, STRENGTH: 0.9%) USED TO DILUTE 1.1 G CYCLOPHOSPHAMIDE
     Route: 041
     Dates: start: 20230429, end: 20230429
  4. SODIUM CHLORIDE [Suspect]
     Active Substance: SODIUM CHLORIDE
     Dosage: INJECTION,0.9%, 500 ML, QD (USED TO DILUTE 0.1G ETOPOSIDE)
     Route: 041
     Dates: start: 20230429, end: 20230501
  5. SODIUM CHLORIDE [Suspect]
     Active Substance: SODIUM CHLORIDE
     Dosage: INJECTION,0.9%, 500 ML, QD (USED TO DILUTE 0.04G ETOPOSIDE)
     Route: 041
     Dates: start: 20230429, end: 20230501
  6. ETOPOSIDE [Suspect]
     Active Substance: ETOPOSIDE
     Indication: Non-Hodgkin^s lymphoma
     Dosage: 0.1 G, QD DILUTED WITH 0.9% SODIUM CHLORIDE 500 ML
     Route: 041
     Dates: start: 20230429, end: 20230501
  7. ETOPOSIDE [Suspect]
     Active Substance: ETOPOSIDE
     Dosage: 0.04 G, QD DILUTED WITH 0.9% SODIUM CHLORIDE 500 ML
     Route: 041
     Dates: start: 20230429, end: 20230501
  8. PIRARUBICIN HYDROCHLORIDE [Suspect]
     Active Substance: PIRARUBICIN HYDROCHLORIDE
     Indication: Non-Hodgkin^s lymphoma
     Dosage: 70 MG, QD (DOSAGE FORM: POWDER) DILUTED WITH 5% GLUCOSE 250ML
     Route: 041
     Dates: start: 20230429, end: 20230429

REACTIONS (1)
  - Myelosuppression [Recovering/Resolving]

NARRATIVE: CASE EVENT DATE: 20230508
